FAERS Safety Report 10270226 (Version 1)
Quarter: 2014Q3

REPORT INFORMATION
  Report Type: Spontaneous
  Country: US (occurrence: US)
  Receive Date: 20140701
  Receipt Date: 20140701
  Transmission Date: 20150326
  Serious: Yes (Hospitalization)
  Sender: FDA-Public Use
  Company Number: US-MYLANLABS-2014S1014956

PATIENT
  Age: 69 Year
  Sex: Male

DRUGS (5)
  1. MIRTAZAPINE. [Suspect]
     Active Substance: MIRTAZAPINE
     Indication: INSOMNIA
     Dosage: 15MG
     Route: 065
  2. MIRTAZAPINE. [Interacting]
     Active Substance: MIRTAZAPINE
     Indication: OFF LABEL USE
     Dosage: 15MG
     Route: 065
  3. MULTIVITAMIN [Concomitant]
     Active Substance: VITAMINS
     Route: 065
  4. ASPIRIN. [Concomitant]
     Active Substance: ASPIRIN
     Dosage: 81MG
     Route: 065
  5. PROPAFENONE. [Interacting]
     Active Substance: PROPAFENONE
     Indication: ATRIAL FIBRILLATION
     Route: 065

REACTIONS (8)
  - Sinus bradycardia [Recovered/Resolved]
  - Electrocardiogram QT prolonged [Recovered/Resolved]
  - Toxicity to various agents [Recovered/Resolved]
  - Convulsion [Recovered/Resolved]
  - Hypotension [Recovered/Resolved]
  - Electrocardiogram QRS complex prolonged [Recovered/Resolved]
  - Drug interaction [Recovered/Resolved]
  - Bundle branch block right [Recovered/Resolved]
